FAERS Safety Report 14570391 (Version 1)
Quarter: 2018Q1

REPORT INFORMATION
  Report Type: Spontaneous
  Country: US (occurrence: US)
  Receive Date: 20180226
  Receipt Date: 20180226
  Transmission Date: 20180509
  Serious: No
  Sender: FDA-Public Use
  Company Number: US-ELI_LILLY_AND_COMPANY-US201802008499

PATIENT
  Sex: Female

DRUGS (1)
  1. FORTEO [Suspect]
     Active Substance: TERIPARATIDE
     Indication: PRODUCT USED FOR UNKNOWN INDICATION
     Dosage: UNK, UNKNOWN
     Route: 065
     Dates: end: 201801

REACTIONS (9)
  - Nausea [Unknown]
  - Alopecia [Unknown]
  - Bone formation increased [Unknown]
  - Feeling abnormal [Unknown]
  - Dizziness [Unknown]
  - Headache [Unknown]
  - Mass [Unknown]
  - Weight increased [Unknown]
  - Waist circumference increased [Unknown]
